FAERS Safety Report 17347351 (Version 3)
Quarter: 2020Q4

REPORT INFORMATION
  Report Type: Spontaneous
  Country: US (occurrence: US)
  Receive Date: 20200130
  Receipt Date: 20201019
  Transmission Date: 20210113
  Serious: Yes (Other)
  Sender: FDA-Public Use
  Company Number: US-GILEAD-2020-0448787

PATIENT
  Age: 34 Year
  Sex: Male
  Weight: 65.76 kg

DRUGS (75)
  1. ATRIPLA [Suspect]
     Active Substance: EFAVIRENZ\EMTRICITABINE\TENOFOVIR DISOPROXIL FUMARATE
     Indication: HIV INFECTION
     Route: 048
  2. COMPLERA [Suspect]
     Active Substance: EMTRICITABINE\RILPIVIRINE HYDROCHLORIDE\TENOFOVIR DISOPROXIL FUMARATE
     Indication: HIV INFECTION
     Dosage: UNK
     Route: 065
     Dates: start: 2017, end: 2018
  3. SUSTIVA [Concomitant]
     Active Substance: EFAVIRENZ
  4. VIRACEPT [Concomitant]
     Active Substance: NELFINAVIR MESYLATE
  5. ZERIT [Concomitant]
     Active Substance: STAVUDINE
  6. RENVELA [Concomitant]
     Active Substance: SEVELAMER CARBONATE
  7. RENAGEL [Concomitant]
     Active Substance: SEVELAMER HYDROCHLORIDE
  8. CORTIZONE [HYDROCORTISONE] [Concomitant]
     Active Substance: HYDROCORTISONE
  9. REGLAN [Concomitant]
     Active Substance: METOCLOPRAMIDE HYDROCHLORIDE
  10. VIREAD [Suspect]
     Active Substance: TENOFOVIR DISOPROXIL FUMARATE
     Indication: HIV INFECTION
     Dosage: UNK
     Route: 048
     Dates: start: 201407
  11. TRUVADA [Suspect]
     Active Substance: EMTRICITABINE\TENOFOVIR DISOPROXIL FUMARATE
     Indication: HIV INFECTION
     Dosage: UNK
     Route: 048
     Dates: start: 2005, end: 2016
  12. LEXIVA [Concomitant]
     Active Substance: FOSAMPRENAVIR CALCIUM
  13. NORVIR [Concomitant]
     Active Substance: RITONAVIR
  14. RETROVIR [Concomitant]
     Active Substance: ZIDOVUDINE
  15. FENTANYL. [Concomitant]
     Active Substance: FENTANYL
  16. PENICILLIN V POTASSIUM. [Concomitant]
     Active Substance: PENICILLIN V POTASSIUM
  17. ANCEF [CEFTRIAXONE SODIUM] [Concomitant]
  18. KIONEX [Concomitant]
     Active Substance: SODIUM POLYSTYRENE SULFONATE
  19. MAGNESIUM CITRATE. [Concomitant]
     Active Substance: MAGNESIUM CITRATE
  20. ALBUTEROL [SALBUTAMOL] [Concomitant]
     Active Substance: ALBUTEROL
  21. VIRAMUNE XR [Concomitant]
     Active Substance: NEVIRAPINE
  22. TRAMADOL. [Concomitant]
     Active Substance: TRAMADOL
  23. XANAX [Concomitant]
     Active Substance: ALPRAZOLAM
  24. PHOSPHORIC ACID [Concomitant]
     Active Substance: PHOSPHORIC ACID
  25. VISTARIL [Concomitant]
     Active Substance: HYDROXYZINE PAMOATE
  26. PEPCID [Concomitant]
     Active Substance: FAMOTIDINE
  27. SENNA S [Concomitant]
     Active Substance: DOCUSATE SODIUM\SENNA LEAF
  28. NORVASC [Concomitant]
     Active Substance: AMLODIPINE BESYLATE
  29. EXALGO [Concomitant]
     Active Substance: HYDROMORPHONE HYDROCHLORIDE
  30. AMBIEN [Concomitant]
     Active Substance: ZOLPIDEM TARTRATE
  31. SOMA [Concomitant]
     Active Substance: CARISOPRODOL
  32. ROCEPHIN [Concomitant]
     Active Substance: CEFTRIAXONE SODIUM
  33. GLYCOPYRROLATE [GLYCOPYRRONIUM] [Concomitant]
     Active Substance: GLYCOPYRRONIUM
  34. LACTULOSE. [Concomitant]
     Active Substance: LACTULOSE
  35. PROMETHAZINE [Concomitant]
     Active Substance: PROMETHAZINE HYDROCHLORIDE
  36. ZIAGEN [Concomitant]
     Active Substance: ABACAVIR SULFATE
  37. VIRAMUNE [Concomitant]
     Active Substance: NEVIRAPINE
  38. LORAZEPAM. [Concomitant]
     Active Substance: LORAZEPAM
  39. VITAMIN B12 [VITAMIN B12 NOS] [Concomitant]
     Active Substance: CYANOCOBALAMIN
  40. RACEPINEPHRINE [RACEPINEFRINE] [Concomitant]
  41. BIKTARVY [Concomitant]
     Active Substance: BICTEGRAVIR SODIUM\EMTRICITABINE\TENOFOVIR ALAFENAMIDE FUMARATE
  42. CRIXIVAN [Concomitant]
     Active Substance: INDINAVIR SULFATE
  43. EPIVIR [Concomitant]
     Active Substance: LAMIVUDINE
  44. CLONIDINE. [Concomitant]
     Active Substance: CLONIDINE
  45. OXYCODONE HYDROCHLORIDE. [Concomitant]
     Active Substance: OXYCODONE HYDROCHLORIDE
  46. MIRALAX [Concomitant]
     Active Substance: POLYETHYLENE GLYCOL 3350
  47. VICOPROFEN [Concomitant]
     Active Substance: HYDROCODONE BITARTRATE\IBUPROFEN
  48. LIDOCAINE. [Concomitant]
     Active Substance: LIDOCAINE
  49. HYDRALAZINE [Concomitant]
     Active Substance: HYDRALAZINE HYDROCHLORIDE
  50. LABETALOL [Concomitant]
     Active Substance: LABETALOL\LABETALOL HYDROCHLORIDE
  51. ZOFRAN [Concomitant]
     Active Substance: ONDANSETRON HYDROCHLORIDE
  52. COLACE [Concomitant]
     Active Substance: DOCUSATE SODIUM
  53. IMIQUIMOD. [Concomitant]
     Active Substance: IMIQUIMOD
  54. HYDROCODONE/ACETAMINOPHEN [Concomitant]
     Active Substance: ACETAMINOPHEN\HYDROCODONE
  55. LOPRESSOR [Concomitant]
     Active Substance: METOPROLOL TARTRATE
  56. OXYCODONE AND ACETAMINOPHEN [Concomitant]
     Active Substance: ACETAMINOPHEN\OXYCODONE HYDROCHLORIDE
  57. MINOXIDIL. [Concomitant]
     Active Substance: MINOXIDIL
  58. PRINIVIL [Concomitant]
     Active Substance: LISINOPRIL
  59. DAPSONE. [Concomitant]
     Active Substance: DAPSONE
  60. AZITHROMYCIN ANHYDROUS. [Concomitant]
     Active Substance: AZITHROMYCIN ANHYDROUS
  61. VERSED [Concomitant]
     Active Substance: MIDAZOLAM HYDROCHLORIDE
  62. HEPARIN [Concomitant]
     Active Substance: HEPARIN SODIUM
  63. VALIUM [Concomitant]
     Active Substance: DIAZEPAM
  64. COMBIVIR [Concomitant]
     Active Substance: LAMIVUDINE\ZIDOVUDINE
  65. REYATAZ [Concomitant]
     Active Substance: ATAZANAVIR SULFATE
  66. TIVICAY [Concomitant]
     Active Substance: DOLUTEGRAVIR SODIUM
  67. CALCIUM ACETATE. [Concomitant]
     Active Substance: CALCIUM ACETATE
  68. SODIUM POLYSTYRENE SULFONATE. [Concomitant]
     Active Substance: SODIUM POLYSTYRENE SULFONATE
  69. FOLATE [Concomitant]
     Active Substance: FOLATE SODIUM
  70. LEUCOVORIN [FOLINIC ACID] [Concomitant]
     Active Substance: LEUCOVORIN
  71. MORPHINE [Concomitant]
     Active Substance: MORPHINE
  72. BENADRYL [Concomitant]
     Active Substance: DIPHENHYDRAMINE HYDROCHLORIDE
  73. SODIUM CHLORIDE. [Concomitant]
     Active Substance: SODIUM CHLORIDE
  74. KETOROLAC [Concomitant]
     Active Substance: KETOROLAC TROMETHAMINE
  75. DILAUDID [Concomitant]
     Active Substance: HYDROMORPHONE HYDROCHLORIDE

REACTIONS (8)
  - End stage renal disease [Not Recovered/Not Resolved]
  - Chronic kidney disease [Not Recovered/Not Resolved]
  - Economic problem [Not Recovered/Not Resolved]
  - Anxiety [Not Recovered/Not Resolved]
  - Anhedonia [Not Recovered/Not Resolved]
  - Acute kidney injury [Recovered/Resolved]
  - Emotional distress [Not Recovered/Not Resolved]
  - Pain [Not Recovered/Not Resolved]

NARRATIVE: CASE EVENT DATE: 2009
